FAERS Safety Report 8096351-2 (Version None)
Quarter: 2012Q1

REPORT INFORMATION
  Report Type: 
  Country: None (occurrence: None)
  Receive Date: 20120131
  Receipt Date: 20120125
  Transmission Date: 20120608
  Serious: Yes (Hospitalization, Congenital Anomaly)
  Sender: FDA-Public Use
  Company Number: GXKR2012DE000688

PATIENT

DRUGS (4)
  1. FOLIC ACID [Concomitant]
     Dosage: MATERNAL DOSE: 0.4 MG/D
     Route: 064
  2. XIPAMIDE [Suspect]
     Dosage: MATERNAL DOSE: 10 MG, DAILY
     Route: 064
  3. AVELOX [Concomitant]
     Dosage: MATERNAL DOSE: UKN
     Route: 064
  4. RAMIPRIL [Suspect]
     Dosage: MATERNAL DOSE: 2.5 MG, DAILY
     Route: 064
     Dates: start: 20101228, end: 20110315

REACTIONS (2)
  - FOETAL EXPOSURE DURING PREGNANCY [None]
  - FALLOT'S TETRALOGY [None]
